FAERS Safety Report 8770940 (Version 1)
Quarter: 2012Q4

REPORT INFORMATION
  Report Type: 
  Country: US (occurrence: US)
  Receive Date: 20120906
  Receipt Date: 20120906
  Transmission Date: 20130627
  Serious: Yes (Other)
  Sender: FDA-Public Use
  Company Number: US-BAYER-2012-090766

PATIENT
  Age: 40 Year
  Sex: Female
  Weight: 99.5 kg

DRUGS (14)
  1. YASMIN [Suspect]
  2. OCELLA [Suspect]
  3. DROSPIRENONE W/ETHINYLESTRADIOL [Suspect]
  4. ALBUTEROL [Concomitant]
     Route: 045
  5. ALPRAZOLAM [Concomitant]
  6. CIMETIDINE [Concomitant]
  7. CIMZIA [Concomitant]
  8. HYDROCHLOROTHIAZIDE [Concomitant]
  9. OMEPRAZOLE [Concomitant]
  10. SERTRALINE [Concomitant]
  11. SYNTHROID [Concomitant]
  12. VENTOLIN [Concomitant]
     Route: 045
  13. ASACOL [Concomitant]
     Indication: IRRITABLE BOWEL SYNDROME
  14. ASACOL [Concomitant]
     Indication: COLITIS

REACTIONS (2)
  - Intracranial venous sinus thrombosis [None]
  - Jugular vein thrombosis [None]
